FAERS Safety Report 6110776-3 (Version None)
Quarter: 2009Q1

REPORT INFORMATION
  Report Type: 
  Country: None (occurrence: None)
  Receive Date: 20090311
  Receipt Date: 20090302
  Transmission Date: 20090719
  Serious: Yes (Hospitalization)
  Sender: FDA-Public Use
  Company Number: PHHO2007DE14499

PATIENT
  Sex: Female
  Weight: 73 kg

DRUGS (3)
  1. ZOLEDRONIC ACID [Suspect]
     Indication: BREAST CANCER
     Dosage: 4 MG, EVERY 3 MONTHS
     Route: 042
     Dates: start: 20061211
  2. CALCIUM [Concomitant]
     Indication: BREAST CANCER
  3. VITAMIN D [Concomitant]
     Indication: BREAST CANCER

REACTIONS (2)
  - OSTEONECROSIS [None]
  - SURGERY [None]
